FAERS Safety Report 7361419-2 (Version None)
Quarter: 2011Q1

REPORT INFORMATION
  Report Type: 
  Country: None (occurrence: None)
  Receive Date: 20110318
  Receipt Date: 20110309
  Transmission Date: 20110831
  Serious: Yes (Other)
  Sender: FDA-Public Use
  Company Number: US-PURDUE-USA-2011-0065095

PATIENT
  Sex: Female

DRUGS (2)
  1. OXYCONTIN [Suspect]
     Indication: ARTHRITIS
  2. OXYCONTIN [Suspect]
     Indication: ARTHRALGIA
     Dosage: UNK
     Dates: start: 20101101

REACTIONS (7)
  - HIATUS HERNIA [None]
  - PNEUMONIA [None]
  - BRONCHITIS [None]
  - NAUSEA [None]
  - ASTHMA [None]
  - DRUG INEFFECTIVE [None]
  - VISION BLURRED [None]
